FAERS Safety Report 21434722 (Version 1)
Quarter: 2022Q4

REPORT INFORMATION
  Report Type: Spontaneous
  Country: US (occurrence: None)
  Receive Date: 20221010
  Receipt Date: 20221010
  Transmission Date: 20230112
  Serious: No
  Sender: FDA-Public Use
  Company Number: 2022A335837

PATIENT
  Sex: Male
  Weight: 106.6 kg

DRUGS (1)
  1. BUDESONIDE\FORMOTEROL\GLYCOPYRRONIUM [Suspect]
     Active Substance: BUDESONIDE\FORMOTEROL\GLYCOPYRRONIUM
     Indication: Chronic obstructive pulmonary disease
     Dosage: 160/9/4.8 MCG
     Route: 055

REACTIONS (4)
  - Dyspnoea [Unknown]
  - Device use issue [Unknown]
  - Product dose omission issue [Unknown]
  - Device delivery system issue [Unknown]
